FAERS Safety Report 5550326-3 (Version None)
Quarter: 2007Q4

REPORT INFORMATION
  Report Type: 
  Country: None (occurrence: None)
  Receive Date: 20071212
  Receipt Date: 20070430
  Transmission Date: 20080405
  Serious: No
  Sender: FDA-Public Use
  Company Number: US-AMGEN-KDL220719

PATIENT
  Sex: Female

DRUGS (4)
  1. ENBREL [Suspect]
     Indication: RHEUMATOID ARTHRITIS
     Route: 058
     Dates: start: 20060828
  2. METHOTREXATE [Concomitant]
     Route: 048
     Dates: start: 20050201, end: 20061101
  3. HYDROMORPHONE HCL [Concomitant]
  4. PLAVIX [Concomitant]
     Dates: start: 20061201

REACTIONS (2)
  - ISCHAEMIC ULCER [None]
  - RHEUMATOID ARTHRITIS [None]
